FAERS Safety Report 21793345 (Version 3)
Quarter: 2023Q1

REPORT INFORMATION
  Report Type: Spontaneous
  Country: JP (occurrence: JP)
  Receive Date: 20221229
  Receipt Date: 20230213
  Transmission Date: 20230418
  Serious: Yes (Other)
  Sender: FDA-Public Use
  Company Number: JP-KYOWAKIRIN-2022AKK019756

PATIENT
  Age: 81 Year
  Sex: Male

DRUGS (10)
  1. DARBEPOETIN ALFA [Suspect]
     Active Substance: DARBEPOETIN ALFA
     Indication: Myelodysplastic syndrome
     Dosage: 240 MICROGRAM, QWK
     Route: 058
     Dates: start: 20180817, end: 20221220
  2. DARBEPOETIN ALFA [Suspect]
     Active Substance: DARBEPOETIN ALFA
     Dosage: 60 MICROGRAM, QWK
     Route: 058
     Dates: start: 20160510
  3. DARBEPOETIN ALFA [Suspect]
     Active Substance: DARBEPOETIN ALFA
     Dosage: 120 MICROGRAM, QWK
     Route: 058
     Dates: start: 20160607
  4. METHENOLONE [Concomitant]
     Active Substance: METHENOLONE
     Indication: Aplastic anaemia
     Dosage: 5 MG, TID, AFTER EVERY MEAL
     Route: 048
     Dates: start: 20180420
  5. ALFACALCIDOL [Concomitant]
     Active Substance: ALFACALCIDOL
     Indication: Bone lesion
     Dosage: 0.25 MICROGRAM, TID, AFTER EVERY MEAL
     Route: 048
     Dates: start: 20180420
  6. MENATETRENONE [Concomitant]
     Active Substance: MENATETRENONE
     Indication: Osteoporosis
     Dosage: 15 MG, TID, AFTER EVERY MEAL
     Route: 048
     Dates: start: 20180420
  7. LASIX [Concomitant]
     Active Substance: FUROSEMIDE
     Indication: Oedema due to cardiac disease
     Dosage: 30 MG, QD, AFTER BREAKFAST
     Route: 048
     Dates: start: 20200102
  8. FEBUXOSTAT [Concomitant]
     Active Substance: FEBUXOSTAT
     Indication: Hyperuricaemia
     Dosage: 40 MG, QD, AFTER BREAKFAST
     Route: 048
     Dates: start: 20220802
  9. DIFLUCAN [Concomitant]
     Active Substance: FLUCONAZOLE
     Indication: Antifungal prophylaxis
     Dosage: 100 MG, QD, AFTER BREAKFAST
     Route: 048
     Dates: start: 20221213
  10. JADENU [Concomitant]
     Active Substance: DEFERASIROX
     Indication: Iron overload
     Dosage: 720 MG, QD, AFTER BREAKFAST
     Route: 048
     Dates: start: 20190208

REACTIONS (1)
  - Aplasia pure red cell [Recovered/Resolved]

NARRATIVE: CASE EVENT DATE: 20221101
